FAERS Safety Report 24019335 (Version 2)
Quarter: 2024Q4

REPORT INFORMATION
  Report Type: Spontaneous
  Country: US (occurrence: US)
  Receive Date: 20240627
  Receipt Date: 20241006
  Transmission Date: 20250115
  Serious: No
  Sender: BRISTOL MYERS SQUIBB
  Company Number: US-BRISTOL-MYERS SQUIBB COMPANY-2024-101964

PATIENT
  Age: 73 Year
  Sex: Female
  Weight: 52.62 kg

DRUGS (1)
  1. POMALYST [Suspect]
     Active Substance: POMALIDOMIDE
     Indication: Plasma cell myeloma
     Route: 048

REACTIONS (8)
  - Pruritus [Unknown]
  - Fatigue [Unknown]
  - Sensitive skin [Unknown]
  - Phantom limb syndrome [Unknown]
  - Toothache [Unknown]
  - Off label use [Unknown]
  - Constipation [Unknown]
  - Back pain [Unknown]
